FAERS Safety Report 7600140-X (Version None)
Quarter: 2011Q3

REPORT INFORMATION
  Report Type: 
  Country: None (occurrence: None)
  Receive Date: 20110711
  Receipt Date: 20110705
  Transmission Date: 20111222
  Serious: Yes (Hospitalization)
  Sender: FDA-Public Use
  Company Number: US-JNJFOC-20110702258

PATIENT
  Sex: Female
  Weight: 75 kg

DRUGS (7)
  1. ZONISAMIDE [Concomitant]
     Indication: MIGRAINE PROPHYLAXIS
     Route: 065
  2. VITAMIN D [Concomitant]
     Indication: VITAMIN D DEFICIENCY
     Dosage: 15,000 DAILY
     Route: 065
  3. TEGRETOL-XR [Suspect]
     Indication: CONVULSION
     Route: 065
  4. CARDIZEM [Concomitant]
     Indication: MIGRAINE PROPHYLAXIS
     Route: 065
  5. ZONISAMIDE [Concomitant]
     Indication: CONVULSION
     Route: 065
  6. REBIF [Suspect]
     Indication: MULTIPLE SCLEROSIS
     Route: 058
     Dates: start: 20100915, end: 20101001
  7. TOPIRAMATE [Suspect]
     Indication: MIGRAINE PROPHYLAXIS
     Route: 048

REACTIONS (2)
  - MULTIPLE SCLEROSIS [None]
  - FALL [None]
